FAERS Safety Report 16736012 (Version 1)
Quarter: 2019Q3

REPORT INFORMATION
  Report Type: Spontaneous
  Country: FR (occurrence: FR)
  Receive Date: 20190823
  Receipt Date: 20190823
  Transmission Date: 20191005
  Serious: Yes (Death, Hospitalization)
  Sender: FDA-Public Use
  Company Number: FR-ROCHE-1548785

PATIENT
  Age: 63 Year
  Sex: Female

DRUGS (13)
  1. MABTHERA [Suspect]
     Active Substance: RITUXIMAB
     Dosage: 3 CYCLES
     Route: 042
     Dates: start: 2014
  2. ZYDELIG [Suspect]
     Active Substance: IDELALISIB
     Indication: CHRONIC LYMPHOCYTIC LEUKAEMIA
     Route: 048
     Dates: start: 20140825, end: 20150106
  3. ZYDELIG [Suspect]
     Active Substance: IDELALISIB
     Route: 048
  4. MABTHERA [Suspect]
     Active Substance: RITUXIMAB
     Indication: CHRONIC LYMPHOCYTIC LEUKAEMIA
     Dosage: 6 CYCLES
     Route: 042
     Dates: start: 2005
  5. MABTHERA [Suspect]
     Active Substance: RITUXIMAB
     Dosage: CYCLE 5
     Route: 042
     Dates: start: 20141125
  6. MABTHERA [Suspect]
     Active Substance: RITUXIMAB
     Dosage: CYCLE 7
     Route: 042
     Dates: start: 20150121, end: 20150121
  7. MABTHERA [Suspect]
     Active Substance: RITUXIMAB
     Route: 042
     Dates: start: 201405
  8. MABTHERA [Suspect]
     Active Substance: RITUXIMAB
     Dosage: CYCLE 4
     Route: 042
     Dates: start: 20140825
  9. MABTHERA [Suspect]
     Active Substance: RITUXIMAB
     Dosage: CYCLE 6
     Route: 042
     Dates: start: 20141222
  10. CAMPATH [Suspect]
     Active Substance: ALEMTUZUMAB
     Indication: CHRONIC LYMPHOCYTIC LEUKAEMIA
     Route: 065
     Dates: start: 201405, end: 201406
  11. BENDAMUSTINE [Suspect]
     Active Substance: BENDAMUSTINE
     Indication: CHRONIC LYMPHOCYTIC LEUKAEMIA
     Dosage: 3 CYCLES
     Route: 065
     Dates: start: 2014
  12. CYCLOPHOSPHAMIDE. [Concomitant]
     Active Substance: CYCLOPHOSPHAMIDE
     Dosage: 6 CYCLES
     Route: 065
  13. FLUDARABINE [Concomitant]
     Active Substance: FLUDARABINE PHOSPHATE
     Dosage: 6 CYCLES
     Route: 065

REACTIONS (4)
  - Haematotoxicity [Unknown]
  - Pulmonary tuberculosis [Fatal]
  - Aspergillus infection [Fatal]
  - Haemoptysis [Fatal]

NARRATIVE: CASE EVENT DATE: 2013
